FAERS Safety Report 4476718-1 (Version None)
Quarter: 2004Q4

REPORT INFORMATION
  Report Type: 
  Country: None (occurrence: None)
  Receive Date: 20041013
  Receipt Date: 20040924
  Transmission Date: 20050328
  Serious: Yes (Hospitalization)
  Sender: FDA-Public Use
  Company Number: 1677

PATIENT
  Age: 50 Year
  Sex: Female

DRUGS (5)
  1. AVINZA [Suspect]
     Indication: RHEUMATOID ARTHRITIS
     Dosage: 120 MG QD PO
     Route: 048
     Dates: start: 20040922, end: 20040924
  2. AVINZA [Suspect]
     Indication: SPINAL OSTEOARTHRITIS
     Dosage: 120 MG QD PO
     Route: 048
     Dates: start: 20040922, end: 20040924
  3. HYDROCODONE/ACETAMINOPHEN [Concomitant]
  4. LORAZEPAM [Concomitant]
  5. OXYCODONE AND ACETAMINOPHEN [Concomitant]

REACTIONS (4)
  - OVERDOSE [None]
  - ROAD TRAFFIC ACCIDENT [None]
  - SOMNOLENCE [None]
  - SUICIDAL IDEATION [None]
